FAERS Safety Report 4710249-6 (Version None)
Quarter: 2005Q3

REPORT INFORMATION
  Report Type: 
  Country: None (occurrence: None)
  Receive Date: 20050711
  Receipt Date: 20050708
  Transmission Date: 20060218
  Serious: Yes (Hospitalization)
  Sender: FDA-Public Use
  Company Number: SG-RB-1860-2005

PATIENT
  Age: 18 Year
  Sex: Male

DRUGS (2)
  1. BUPRENORPHINE HCL [Suspect]
     Indication: DRUG USE FOR UNKNOWN INDICATION
     Dosage: DOSAGE UNKNOWN
     Route: 042
  2. MEDICINALPRODUCT NOT SPECIFIED BY SENDER [Suspect]
     Indication: INSOMNIA
     Dosage: DOSAGE UNKNOWN
     Route: 065

REACTIONS (14)
  - COMA [None]
  - DRUG ABUSER [None]
  - HYPERREFLEXIA [None]
  - HYPERTONIA [None]
  - INTENTIONAL MISUSE [None]
  - LETHARGY [None]
  - MYOCLONUS [None]
  - PNEUMONIA [None]
  - PROGRESSIVE MULTIFOCAL LEUKOENCEPHALOPATHY [None]
  - PUPILLARY REFLEX IMPAIRED [None]
  - PYREXIA [None]
  - QUADRIPARESIS [None]
  - RESPIRATORY FAILURE [None]
  - SOMNOLENCE [None]
